FAERS Safety Report 9285442 (Version 1)
Quarter: 2013Q2

REPORT INFORMATION
  Report Type: Spontaneous
  Country: US (occurrence: US)
  Receive Date: 20130513
  Receipt Date: 20130513
  Transmission Date: 20140414
  Serious: No
  Sender: FDA-Public Use
  Company Number: US-PFIZER INC-2013146752

PATIENT
  Age: 58 Year
  Sex: Female
  Weight: 60.77 kg

DRUGS (1)
  1. RELPAX [Suspect]
     Indication: MIGRAINE
     Dosage: 40 MG, AS NEEDED
     Route: 048

REACTIONS (9)
  - Feeling abnormal [Unknown]
  - Abdominal distension [Recovered/Resolved]
  - Nausea [Unknown]
  - Malaise [Recovered/Resolved]
  - Headache [Recovered/Resolved]
  - Impaired driving ability [Recovered/Resolved]
  - Drug effect delayed [Unknown]
  - Fatigue [Recovered/Resolved]
  - Drug ineffective [Unknown]
